FAERS Safety Report 4348200-3 (Version None)
Quarter: 2004Q2

REPORT INFORMATION
  Report Type: 
  Country: None (occurrence: None)
  Receive Date: 20040422
  Receipt Date: 20040406
  Transmission Date: 20050107
  Serious: Yes (Hospitalization, Other)
  Sender: FDA-Public Use
  Company Number: USA040362204

PATIENT
  Age: 69 Year
  Sex: Female

DRUGS (4)
  1. FORTEO [Suspect]
     Indication: OSTEOPOROSIS
     Dates: start: 20040219
  2. EVISTA [Suspect]
     Indication: BONE DENSITY DECREASED
     Dates: start: 20000101
  3. MULTIVITAMIN [Concomitant]
  4. CALCIUM [Concomitant]

REACTIONS (9)
  - CONSTIPATION [None]
  - DIVERTICULITIS [None]
  - FALL [None]
  - FRACTURE [None]
  - HAEMATOCHEZIA [None]
  - ORAL PAIN [None]
  - ORAL SOFT TISSUE DISORDER [None]
  - PHARMACEUTICAL PRODUCT COMPLAINT [None]
  - WRIST FRACTURE [None]
